FAERS Safety Report 10961665 (Version 1)
Quarter: 2015Q1

REPORT INFORMATION
  Report Type: Spontaneous
  Country: IT (occurrence: IT)
  Receive Date: 20150327
  Receipt Date: 20150327
  Transmission Date: 20150721
  Serious: Yes (Other)
  Sender: FDA-Public Use
  Company Number: PHHY2015IT034218

PATIENT
  Age: 69 Year
  Sex: Male

DRUGS (5)
  1. LEVOFOLINIC ACID [Concomitant]
     Active Substance: LEVOLEUCOVORIN
     Indication: PRODUCT USED FOR UNKNOWN INDICATION
     Dosage: 360 MG, UNK
     Route: 042
     Dates: start: 20140704, end: 20140909
  2. OXALIPLATIN. [Suspect]
     Active Substance: OXALIPLATIN
     Indication: RECTAL CANCER METASTATIC
     Dosage: 150 MG, CYCLIC.
     Route: 042
     Dates: start: 20140704, end: 20140909
  3. ERBITUX [Concomitant]
     Active Substance: CETUXIMAB
     Indication: RECTAL CANCER METASTATIC
     Dosage: 450 MG, UNK
     Route: 042
     Dates: start: 20140704, end: 20140909
  4. FLUOROURACIL. [Concomitant]
     Active Substance: FLUOROURACIL
     Dosage: 4320 MG, (IN DRIP)
     Route: 042
     Dates: start: 20140704, end: 20140909
  5. FLUOROURACIL. [Concomitant]
     Active Substance: FLUOROURACIL
     Indication: RECTAL CANCER METASTATIC
     Dosage: 360 MG, (IN BOLUS)
     Route: 042
     Dates: start: 20140704, end: 20140909

REACTIONS (2)
  - Hypertensive crisis [Recovered/Resolved]
  - Infusion related reaction [Recovered/Resolved]

NARRATIVE: CASE EVENT DATE: 20140822
